FAERS Safety Report 19062732 (Version 1)
Quarter: 2021Q1

REPORT INFORMATION
  Report Type: Spontaneous
  Country: US (occurrence: US)
  Receive Date: 20210326
  Receipt Date: 20210326
  Transmission Date: 20210420
  Serious: Yes (Other)
  Sender: FDA-Public Use
  Company Number: US-APOTEX-2021AP007743

PATIENT
  Age: 50 Year
  Sex: Male

DRUGS (2)
  1. ANASTROZOLE. [Suspect]
     Active Substance: ANASTROZOLE
     Indication: HYPOGONADISM MALE
     Dosage: UNK
     Route: 065
  2. CLOMIPHENE [CLOMIFENE] [Suspect]
     Active Substance: CLOMIPHENE
     Indication: HYPOGONADISM MALE
     Dosage: UNK
     Route: 065

REACTIONS (3)
  - Electrocardiogram QT prolonged [Unknown]
  - Drug interaction [Unknown]
  - Ventricular tachycardia [Unknown]
